FAERS Safety Report 16851194 (Version 2)
Quarter: 2019Q4

REPORT INFORMATION
  Report Type: Spontaneous
  Country: US (occurrence: US)
  Receive Date: 20190925
  Receipt Date: 20191001
  Transmission Date: 20200122
  Serious: Yes (Other)
  Sender: FDA-Public Use
  Company Number: US-PFIZER INC-2019408906

PATIENT
  Age: 71 Year
  Sex: Female
  Weight: 53.97 kg

DRUGS (1)
  1. IBRANCE [Suspect]
     Active Substance: PALBOCICLIB
     Indication: BREAST CANCER
     Dosage: 75 MG, CYCLIC (ONCE DAILY ON THE FIRST 6 OF 7 DAYS FOR 3 WEEKS, FOLLOWED BY ONE WEEK OFF)
     Route: 048

REACTIONS (1)
  - Neutropenia [Unknown]
